FAERS Safety Report 7029269-4 (Version None)
Quarter: 2010Q3

REPORT INFORMATION
  Report Type: 
  Country: None (occurrence: None)
  Receive Date: 20100924
  Receipt Date: 20090724
  Transmission Date: 20110219
  Serious: Yes (Other)
  Sender: FDA-Public Use
  Company Number: WAES 0907USA04910

PATIENT
  Sex: Female

DRUGS (1)
  1. VYTORIN [Suspect]
     Dosage: 10-80 MG/UNK/PO
     Route: 048

REACTIONS (2)
  - RHABDOMYOLYSIS [None]
  - SWELLING [None]
